FAERS Safety Report 10025188 (Version 2)
Quarter: 2014Q2

REPORT INFORMATION
  Report Type: Spontaneous
  Country: US (occurrence: US)
  Receive Date: 20140320
  Receipt Date: 20140507
  Transmission Date: 20141212
  Serious: Yes (Hospitalization)
  Sender: FDA-Public Use
  Company Number: US-GILEAD-2014-0097186

PATIENT
  Sex: Female

DRUGS (1)
  1. LETAIRIS [Suspect]
     Indication: PRODUCT USED FOR UNKNOWN INDICATION
     Dosage: 10 MG, QD
     Route: 065
     Dates: start: 20120412

REACTIONS (7)
  - Hypotension [Unknown]
  - Decreased appetite [Unknown]
  - Dialysis related complication [Unknown]
  - Headache [Unknown]
  - Dyspnoea exertional [Unknown]
  - Fatigue [Unknown]
  - Asthenia [Unknown]
